FAERS Safety Report 18218648 (Version 1)
Quarter: 2020Q3

REPORT INFORMATION
  Report Type: Spontaneous
  Country: US (occurrence: US)
  Receive Date: 20200831
  Receipt Date: 20200831
  Transmission Date: 20201103
  Serious: Yes (Death)
  Sender: FDA-Public Use
  Company Number: None

PATIENT
  Age: 61 Year
  Sex: Male

DRUGS (1)
  1. LENVIMA [Suspect]
     Active Substance: LENVATINIB
     Indication: THYROID CANCER
     Route: 048
     Dates: start: 20181023

REACTIONS (8)
  - Acute respiratory failure [None]
  - Organising pneumonia [None]
  - Decreased appetite [None]
  - Hypophagia [None]
  - Cerebral venous sinus thrombosis [None]
  - Pneumonitis [None]
  - Weight decreased [None]
  - Cancer pain [None]

NARRATIVE: CASE EVENT DATE: 20190317
